FAERS Safety Report 5906246-5 (Version None)
Quarter: 2008Q4

REPORT INFORMATION
  Report Type: 
  Country: None (occurrence: None)
  Receive Date: 20081002
  Receipt Date: 20080924
  Transmission Date: 20090506
  Serious: Yes (Death)
  Sender: FDA-Public Use
  Company Number: KR-PFIZER INC-2008076394

PATIENT
  Age: 43 Year
  Sex: Male

DRUGS (11)
  1. IRINOTECAN HCL [Suspect]
     Indication: GASTRIC CANCER
     Route: 042
     Dates: start: 20071016, end: 20071231
  2. OXALIPLATIN [Suspect]
     Indication: GASTRIC CANCER
     Route: 042
     Dates: start: 20071016, end: 20071231
  3. TEGAFUR/GIMERACIL/OTERACIL POTASSIUM [Suspect]
     Indication: GASTRIC CANCER
     Route: 048
     Dates: start: 20071016, end: 20071231
  4. ATROPINE [Concomitant]
     Dosage: TEXT:0.5 AMP
     Route: 042
     Dates: start: 20071016, end: 20071231
  5. DEXAMETHASONE [Concomitant]
     Dates: start: 20071015, end: 20071231
  6. GRANISETRON [Concomitant]
     Indication: NAUSEA
     Dates: start: 20071016, end: 20071231
  7. LAMIVUDINE [Concomitant]
     Indication: HEPATITIS B ANTIGEN POSITIVE
     Dosage: DAILY DOSE:100MG
     Route: 048
     Dates: start: 20071015, end: 20071231
  8. OMEPRAZOLE [Concomitant]
     Indication: ABDOMINAL PAIN UPPER
     Dosage: DAILY DOSE:40MG
     Route: 042
     Dates: start: 20071012, end: 20071230
  9. OMEPRAZOLE [Concomitant]
     Indication: GASTROINTESTINAL HAEMORRHAGE
  10. URSODEOXYCHOLIC ACID [Concomitant]
     Route: 048
     Dates: start: 20071016, end: 20071231
  11. OXYCODONE HCL [Concomitant]
     Indication: ABDOMINAL PAIN
     Route: 048
     Dates: start: 20071114, end: 20071212

REACTIONS (1)
  - TUMOUR HAEMORRHAGE [None]
